FAERS Safety Report 9017310 (Version 2)
Quarter: 2013Q1

REPORT INFORMATION
  Report Type: Spontaneous
  Country: US (occurrence: US)
  Receive Date: 20130117
  Receipt Date: 20130306
  Transmission Date: 20140127
  Serious: No
  Sender: FDA-Public Use
  Company Number: US-PFIZER INC-2013016864

PATIENT
  Sex: Male

DRUGS (1)
  1. ADVIL PM [Suspect]
     Indication: INSOMNIA
     Dosage: 400 MG (TWO CAPLETS TOGETHER), ONCE DAILY AT NIGHT
     Route: 048
     Dates: start: 20121201

REACTIONS (2)
  - Intentional overdose [Unknown]
  - Drug ineffective [Unknown]
